FAERS Safety Report 7387319-X (Version None)
Quarter: 2011Q1

REPORT INFORMATION
  Report Type: 
  Country: None (occurrence: None)
  Receive Date: 20110331
  Receipt Date: 20110328
  Transmission Date: 20110831
  Serious: Yes (Hospitalization)
  Sender: FDA-Public Use
  Company Number: US-BRISTOL-MYERS SQUIBB COMPANY-15640543

PATIENT
  Age: 68 Year
  Sex: Male

DRUGS (7)
  1. ETOPOSIDE [Suspect]
     Indication: SMALL CELL LUNG CANCER STAGE UNSPECIFIED
     Dosage: 1DF= 100 UNIT,INJECTION
     Dates: start: 20110201
  2. CISPLATIN [Suspect]
     Indication: SMALL CELL LUNG CANCER STAGE UNSPECIFIED
     Dosage: 1DF= 75 UNIT
     Dates: start: 20110131
  3. LOPERAMIDE HCL [Concomitant]
     Indication: DIARRHOEA
     Dates: start: 20110101
  4. PROCHLORPERAZINE EDISYLATE [Concomitant]
     Indication: NAUSEA
     Dates: start: 20110131
  5. LORAZEPAM [Concomitant]
     Indication: INSOMNIA
  6. PEGFILGRASTIM [Concomitant]
     Dosage: 04FEB11-04FEB11,26FEB11-26FEB11
     Dates: start: 20110204, end: 20110226
  7. ONDANSETRON [Concomitant]
     Indication: NAUSEA
     Dates: start: 20110131

REACTIONS (2)
  - CONFUSIONAL STATE [None]
  - FEBRILE NEUTROPENIA [None]
